FAERS Safety Report 5114720-7 (Version None)
Quarter: 2006Q3

REPORT INFORMATION
  Report Type: 
  Country: None (occurrence: None)
  Receive Date: 20060926
  Receipt Date: 20060919
  Transmission Date: 20061208
  Serious: Yes (Hospitalization)
  Sender: FDA-Public Use
  Company Number: DE-ROCHE-463548

PATIENT
  Age: 68 Year
  Sex: Male

DRUGS (2)
  1. MYCOPHENOLATE MOFETIL [Suspect]
     Route: 065
     Dates: start: 20060530
  2. TACROLIMUS [Suspect]
     Route: 048
     Dates: start: 20060530

REACTIONS (2)
  - HEPATIC ENZYME INCREASED [None]
  - HEPATITIS C VIRUS [None]
